FAERS Safety Report 8275077-6 (Version None)
Quarter: 2012Q2

REPORT INFORMATION
  Report Type: 
  Country: None (occurrence: None)
  Receive Date: 20120411
  Receipt Date: 20120403
  Transmission Date: 20120825
  Serious: Yes (Other)
  Sender: FDA-Public Use
  Company Number: US-CTI_01455_2012

PATIENT
  Sex: Male

DRUGS (10)
  1. ONGLIZA [Concomitant]
     Dosage: DF
  2. METFORMIN HCL [Concomitant]
     Dosage: DF
  3. SINGULAIR [Concomitant]
     Dosage: DF
  4. LISINOPRIL [Concomitant]
     Dosage: DF
  5. ZYRTEC [Concomitant]
     Dosage: DF
  6. CARVEDIOLOR [Concomitant]
     Dosage: DF
  7. SPIRIVA [Concomitant]
     Dosage: DF
  8. LIPITOR [Concomitant]
     Dosage: DF
  9. ZYFLO CR [Suspect]
     Indication: PRODUCT USED FOR UNKNOWN INDICATION
     Dosage: ONCE
     Route: 048
     Dates: start: 20120313, end: 20120313
  10. ADVAIR DISKUS 100/50 [Concomitant]
     Dosage: DF

REACTIONS (3)
  - BLOOD PRESSURE INCREASED [None]
  - PALPITATIONS [None]
  - HEART RATE DECREASED [None]
